FAERS Safety Report 14728550 (Version 2)
Quarter: 2018Q2

REPORT INFORMATION
  Report Type: Spontaneous
  Country: NL (occurrence: NL)
  Receive Date: 20180406
  Receipt Date: 20180416
  Transmission Date: 20180711
  Serious: Yes (Death, Other)
  Sender: FDA-Public Use
  Company Number: NL-ACTELION-A-CH2018-169876

PATIENT
  Age: 58 Year
  Sex: Male
  Weight: 65 kg

DRUGS (5)
  1. TRACLEER [Suspect]
     Active Substance: BOSENTAN
     Indication: PULMONARY ARTERIAL HYPERTENSION
     Dosage: 62.5 MG, BID
     Route: 048
     Dates: start: 20171103, end: 20171120
  2. NIFEDIPINE. [Concomitant]
     Active Substance: NIFEDIPINE
     Indication: HYPERTENSION
     Dosage: 30 MG, OD
     Route: 048
     Dates: start: 20080620
  3. ABACAVIR. [Concomitant]
     Active Substance: ABACAVIR
     Indication: HIV INFECTION
     Dosage: 300 MG, OD
     Route: 048
     Dates: start: 20080620
  4. LAMIVUDINA [Concomitant]
     Active Substance: LAMIVUDINE
     Indication: HIV INFECTION
     Dosage: 50 ML, OD
     Route: 048
     Dates: start: 20080620
  5. RALTEGRAVIR. [Concomitant]
     Active Substance: RALTEGRAVIR
     Indication: HIV INFECTION
     Dosage: 400 MG, BID
     Route: 048
     Dates: start: 20171101

REACTIONS (6)
  - Dysphagia [Recovering/Resolving]
  - Candida infection [Unknown]
  - Drug interaction [Unknown]
  - Swollen tongue [Recovering/Resolving]
  - Death [Fatal]
  - Tongue ulceration [Unknown]

NARRATIVE: CASE EVENT DATE: 2017
